FAERS Safety Report 5942116-4 (Version None)
Quarter: 2008Q4

REPORT INFORMATION
  Report Type: 
  Country: None (occurrence: None)
  Receive Date: 20081031
  Receipt Date: 20081016
  Transmission Date: 20090506
  Serious: Yes (Hospitalization, Other)
  Sender: FDA-Public Use
  Company Number: 230004K08USA

PATIENT
  Age: 66 Year
  Sex: Male

DRUGS (1)
  1. REBIF [Suspect]
     Indication: MULTIPLE SCLEROSIS
     Dosage: 44 MCG, 3 IN 1 WEEKS, SUBCUTANEOUS
     Route: 058
     Dates: start: 20070530, end: 20080606

REACTIONS (4)
  - CLOSTRIDIAL INFECTION [None]
  - HAEMARTHROSIS [None]
  - OSTEOARTHRITIS [None]
  - STAPHYLOCOCCAL INFECTION [None]
